FAERS Safety Report 20605326 (Version 1)
Quarter: 2022Q1

REPORT INFORMATION
  Report Type: Report from Study
  Country: US (occurrence: None)
  Receive Date: 20220317
  Receipt Date: 20220317
  Transmission Date: 20220424
  Serious: Yes (Hospitalization)
  Sender: FDA-Public Use
  Company Number: US-ROCHE-1060845

PATIENT
  Age: 57 Year
  Sex: Female
  Weight: 57.1 kg

DRUGS (3)
  1. BEVACIZUMAB [Suspect]
     Active Substance: BEVACIZUMAB
     Indication: Ovarian epithelial cancer
     Route: 042
     Dates: start: 20120111
  2. PACLITAXEL [Suspect]
     Active Substance: PACLITAXEL
     Indication: Ovarian epithelial cancer
     Dosage: DATE OF LAST DOSE-01/FEB/2012.
     Route: 042
     Dates: start: 20111220
  3. CARBOPLATIN [Suspect]
     Active Substance: CARBOPLATIN
     Indication: Ovarian epithelial cancer
     Dosage: AUC=6, DATE OF LAST DOSE-01/FEB/2012.
     Route: 042
     Dates: start: 20111220

REACTIONS (3)
  - Small intestinal obstruction [Recovered/Resolved]
  - Wound dehiscence [Not Recovered/Not Resolved]
  - Small intestinal obstruction [Recovered/Resolved]

NARRATIVE: CASE EVENT DATE: 20120106
